FAERS Safety Report 6702387-3 (Version None)
Quarter: 2010Q2

REPORT INFORMATION
  Report Type: 
  Country: None (occurrence: None)
  Receive Date: 20100429
  Receipt Date: 20100423
  Transmission Date: 20101027
  Serious: Yes (Hospitalization)
  Sender: FDA-Public Use
  Company Number: A0790559A

PATIENT
  Age: 62 Year
  Sex: Male
  Weight: 159 kg

DRUGS (7)
  1. AVANDIA [Suspect]
     Dosage: 4MG PER DAY
     Route: 048
     Dates: start: 20060101, end: 20061201
  2. ACTOS [Concomitant]
     Dates: end: 20060101
  3. NIFEREX [Concomitant]
     Dates: end: 20061201
  4. ISOSORBIDE [Concomitant]
  5. ACCUPRIL [Concomitant]
  6. GLIMEPIRIDE [Concomitant]
  7. TOPROL-XL [Concomitant]

REACTIONS (4)
  - CARDIAC FAILURE CONGESTIVE [None]
  - CEREBROVASCULAR ACCIDENT [None]
  - CORONARY ARTERY DISEASE [None]
  - ISCHAEMIC CARDIOMYOPATHY [None]
